FAERS Safety Report 5181174-4 (Version None)
Quarter: 2006Q4

REPORT INFORMATION
  Report Type: 
  Country: None (occurrence: None)
  Receive Date: 20061220
  Receipt Date: 20041101
  Transmission Date: 20070319
  Serious: No
  Sender: FDA-Public Use
  Company Number: US-GLAXOSMITHKLINE-A0532115A

PATIENT
  Age: 54 Year
  Sex: Female

DRUGS (3)
  1. COMMIT [Suspect]
     Dates: end: 20041022
  2. NICODERM CQ [Suspect]
  3. COMMIT [Suspect]
     Route: 002

REACTIONS (3)
  - APPLICATION SITE PRURITUS [None]
  - FLATULENCE [None]
  - NONSPECIFIC REACTION [None]
